FAERS Safety Report 8949390 (Version 1)
Quarter: 2012Q4

REPORT INFORMATION
  Report Type: 
  Country: JP (occurrence: JP)
  Receive Date: 20121206
  Receipt Date: 20121206
  Transmission Date: 20130627
  Serious: Yes (Other)
  Sender: FDA-Public Use
  Company Number: JP-ELI_LILLY_AND_COMPANY-JP201212000010

PATIENT
  Age: 83 Year
  Sex: Male

DRUGS (4)
  1. CYMBALTA [Suspect]
     Dosage: 20 mg, qd
     Route: 048
     Dates: start: 20121102, end: 20121126
  2. TEGRETOL [Concomitant]
     Dosage: UNK
     Route: 048
     Dates: start: 20120812
  3. SPIRAZON [Concomitant]
     Route: 048
  4. SUNRYTHM [Concomitant]
     Route: 048

REACTIONS (1)
  - Drug eruption [Not Recovered/Not Resolved]
